FAERS Safety Report 23899405 (Version 2)
Quarter: 2024Q2

REPORT INFORMATION
  Report Type: Other
  Country: CN (occurrence: CN)
  Receive Date: 20240526
  Receipt Date: 20240607
  Transmission Date: 20240716
  Serious: Yes (Other)
  Sender: FDA-Public Use
  Company Number: CN-BoehringerIngelheim-2024-BI-028128

PATIENT
  Age: 42 Year
  Sex: Male

DRUGS (3)
  1. ALTEPLASE [Suspect]
     Active Substance: ALTEPLASE
     Indication: Ischaemic stroke
     Dosage: 0.6MG/KG/ (43.2MG)
     Route: 042
  2. TEICOPLANIN [Concomitant]
     Active Substance: TEICOPLANIN
  3. WARFARIN [Concomitant]
     Active Substance: WARFARIN
     Route: 048

REACTIONS (9)
  - Cerebral haemorrhage [Recovering/Resolving]
  - Marfan^s syndrome [Recovering/Resolving]
  - Heart valve incompetence [Recovering/Resolving]
  - Aortic dilatation [Recovering/Resolving]
  - Mitral valve prolapse [Recovering/Resolving]
  - Left atrial enlargement [Recovering/Resolving]
  - Left ventricular enlargement [Recovering/Resolving]
  - Cardiac valve vegetation [Recovering/Resolving]
  - Alpha haemolytic streptococcal infection [Recovering/Resolving]
